FAERS Safety Report 5852294-3 (Version None)
Quarter: 2008Q3

REPORT INFORMATION
  Report Type: 
  Country: None (occurrence: None)
  Receive Date: 20080821
  Receipt Date: 20080813
  Transmission Date: 20090109
  Serious: Yes (Hospitalization, Other)
  Sender: FDA-Public Use
  Company Number: US-AMGEN-QUU301405

PATIENT
  Sex: Male

DRUGS (1)
  1. ENBREL [Suspect]
     Indication: PSORIASIS
     Route: 058

REACTIONS (4)
  - CERVICAL VERTEBRAL FRACTURE [None]
  - FAILURE OF IMPLANT [None]
  - PROCEDURAL PAIN [None]
  - THORACIC VERTEBRAL FRACTURE [None]
